FAERS Safety Report 6306652-3 (Version None)
Quarter: 2009Q3

REPORT INFORMATION
  Report Type: 
  Country: None (occurrence: None)
  Receive Date: 20090812
  Receipt Date: 20090803
  Transmission Date: 20100115
  Serious: Yes (Hospitalization)
  Sender: FDA-Public Use
  Company Number: B0588225A

PATIENT
  Age: 64 Year
  Sex: Male

DRUGS (5)
  1. AMOXICILLIN AND CLAVULANATE POTASSIUM [Suspect]
     Indication: URINARY TRACT INFECTION
  2. CIPROFLOXACIN [Suspect]
     Indication: URINARY TRACT INFECTION
  3. ANTIFUNGAL AGENT (UNSPECIFIED) [Suspect]
  4. CHEMOTHERAPY [Suspect]
  5. ALEMTUZUMAB [Suspect]

REACTIONS (6)
  - LYMPHADENOPATHY MEDIASTINAL [None]
  - PANCYTOPENIA [None]
  - PNEUMONIA [None]
  - PYREXIA [None]
  - TREATMENT FAILURE [None]
  - TUBERCULOSIS [None]
